FAERS Safety Report 10079675 (Version 1)
Quarter: 2014Q2

REPORT INFORMATION
  Report Type: Other
  Country: US (occurrence: US)
  Receive Date: 20140415
  Receipt Date: 20140415
  Transmission Date: 20141212
  Serious: Yes (Other)
  Sender: FDA-Public Use
  Company Number: US-BRISTOL-MYERS SQUIBB COMPANY-20614426

PATIENT
  Age: 40 Year
  Sex: Male

DRUGS (2)
  1. CISPLATIN [Suspect]
     Indication: MALIGNANT PITUITARY TUMOUR
     Dosage: 1 DF= 80 MG/M SUP(2 ).
     Dates: start: 201107
  2. ETOPOSIDE [Suspect]
     Indication: MALIGNANT PITUITARY TUMOUR
     Dosage: 1 DF= 100MG/M SUP(2).
     Dates: start: 201107

REACTIONS (2)
  - Renal failure [Unknown]
  - Secondary adrenocortical insufficiency [Unknown]
